FAERS Safety Report 21316276 (Version 4)
Quarter: 2024Q4

REPORT INFORMATION
  Report Type: Report from Study
  Country: US (occurrence: US)
  Receive Date: 20220910
  Receipt Date: 20241017
  Transmission Date: 20250114
  Serious: No
  Sender: NOVARTIS
  Company Number: US-NOVARTISTESTPH-NVSC2022US203075

PATIENT
  Age: 43 Year
  Sex: Female
  Weight: 92 kg

DRUGS (1)
  1. KESIMPTA [Suspect]
     Active Substance: OFATUMUMAB
     Indication: Multiple sclerosis
     Dosage: UNK UNK, QMO
     Route: 065
     Dates: start: 20220901

REACTIONS (5)
  - Pain [Recovered/Resolved]
  - Pyrexia [Recovered/Resolved]
  - Chills [Recovered/Resolved]
  - Nausea [Unknown]
  - Headache [Unknown]

NARRATIVE: CASE EVENT DATE: 20220901
